FAERS Safety Report 9458150 (Version 1)
Quarter: 2013Q3

REPORT INFORMATION
  Report Type: Report from Study
  Country: FR (occurrence: FR)
  Receive Date: 20130814
  Receipt Date: 20130814
  Transmission Date: 20140515
  Serious: Yes (Death, Other)
  Sender: FDA-Public Use
  Company Number: FR-PFIZER INC-2013019191

PATIENT
  Age: 76 Year
  Sex: Female

DRUGS (7)
  1. CRIZOTINIB [Suspect]
     Indication: NON-SMALL CELL LUNG CANCER
     Dosage: 250 MG, 2X/DAY
     Dates: start: 20120822, end: 20130106
  2. CRIZOTINIB [Suspect]
     Dosage: UNK
     Dates: start: 20130312, end: 20130716
  3. SIMVASTATIN [Concomitant]
     Dosage: 1 DF, 1X/DAY
  4. PLAVIX [Concomitant]
     Dosage: UNK
  5. OLMETEC [Concomitant]
     Dosage: UNK
  6. SERESTA [Concomitant]
     Dosage: UNK
  7. INEXIUM [Concomitant]
     Dosage: UNK

REACTIONS (3)
  - Death [Fatal]
  - Second primary malignancy [Unknown]
  - Plasma cell myeloma [Unknown]
